FAERS Safety Report 8462381-1 (Version None)
Quarter: 2012Q2

REPORT INFORMATION
  Report Type: 
  Country: None (occurrence: None)
  Receive Date: 20120625
  Receipt Date: 20120620
  Transmission Date: 20120825
  Serious: Yes (Hospitalization)
  Sender: FDA-Public Use
  Company Number: US-PFIZER INC-2012149496

PATIENT
  Sex: Female

DRUGS (4)
  1. PROCARDIA XL [Suspect]
     Indication: BLOOD PRESSURE ABNORMAL
     Dosage: 30 MG, DAILY
  2. ACETYLSALICYLIC ACID [Concomitant]
     Dosage: 81 MG, DAILY
  3. LISINOPRIL [Concomitant]
     Indication: BLOOD PRESSURE ABNORMAL
     Dosage: 5 MG, DAILY
  4. PROCARDIA XL [Suspect]
     Dosage: 60 MG, DAILY

REACTIONS (1)
  - CEREBROVASCULAR ACCIDENT [None]
